FAERS Safety Report 16286349 (Version 2)
Quarter: 2019Q2

REPORT INFORMATION
  Report Type: Spontaneous
  Country: GB (occurrence: GB)
  Receive Date: 20190508
  Receipt Date: 20190517
  Transmission Date: 20190711
  Serious: Yes (Other)
  Sender: FDA-Public Use
  Company Number: GB-TEVA-2007B-04170

PATIENT
  Age: 39 Year
  Sex: Male

DRUGS (3)
  1. SIMVASTATIN (UNKNOWN) [Suspect]
     Active Substance: SIMVASTATIN
     Indication: HYPERCHOLESTEROLAEMIA
     Dates: start: 2001, end: 2001
  2. PRAVASTATIN. [Suspect]
     Active Substance: PRAVASTATIN
     Indication: HYPERCHOLESTEROLAEMIA
     Dates: start: 200111, end: 2001
  3. BEZAFIBRATE (UNKNOWN) [Suspect]
     Active Substance: BEZAFIBRATE
     Indication: HYPERCHOLESTEROLAEMIA
     Dates: start: 2001, end: 2001

REACTIONS (2)
  - Dizziness [Unknown]
  - Psoriasis [Unknown]
